FAERS Safety Report 5922025-7 (Version None)
Quarter: 2008Q4

REPORT INFORMATION
  Report Type: 
  Country: None (occurrence: None)
  Receive Date: 20081017
  Receipt Date: 20081015
  Transmission Date: 20090506
  Serious: Yes (Hospitalization)
  Sender: FDA-Public Use
  Company Number: A0752217A

PATIENT
  Age: 77 Year
  Sex: Male
  Weight: 82.7 kg

DRUGS (7)
  1. TOPOTECAN [Suspect]
     Indication: SMALL CELL LUNG CANCER EXTENSIVE STAGE
     Dosage: 4MGM2 CYCLIC
     Route: 042
     Dates: start: 20080828, end: 20081003
  2. CARBOPLATIN [Suspect]
     Indication: SMALL CELL LUNG CANCER EXTENSIVE STAGE
     Dosage: 610MG CYCLIC
     Route: 042
     Dates: start: 20080828, end: 20080926
  3. FEXOFENADINE [Concomitant]
     Dosage: 160MG PER DAY
     Route: 048
  4. THEOPHYLLINE [Concomitant]
     Indication: ASTHMA
     Dosage: 300MG TWICE PER DAY
     Route: 048
  5. AZELASTINE HCL [Concomitant]
     Dosage: 2SPR TWICE PER DAY
     Route: 045
  6. ALBUTEROL [Concomitant]
     Dosage: 3ML AS REQUIRED
     Route: 055
  7. FLUTICASONE/SALMETEROL [Concomitant]
     Indication: ASTHMA
     Dosage: 1PUFF TWICE PER DAY
     Route: 055

REACTIONS (4)
  - CONFUSIONAL STATE [None]
  - DYSPNOEA [None]
  - NEUTROPENIA [None]
  - PYREXIA [None]
